FAERS Safety Report 9798529 (Version 2)
Quarter: 2014Q1

REPORT INFORMATION
  Report Type: Report from Study
  Country: US (occurrence: US)
  Receive Date: 20140106
  Receipt Date: 20140318
  Transmission Date: 20141002
  Serious: Yes (Other)
  Sender: FDA-Public Use
  Company Number: US-ROCHE-1324003

PATIENT
  Sex: Female

DRUGS (12)
  1. LUCENTIS [Suspect]
     Indication: AGE-RELATED MACULAR DEGENERATION
     Dosage: X3 MONTHS THEN QUARTERLY
     Route: 050
  2. AVASTIN [Suspect]
     Indication: PRODUCT USED FOR UNKNOWN INDICATION
     Route: 050
  3. BONIVA [Suspect]
     Indication: PRODUCT USED FOR UNKNOWN INDICATION
     Route: 048
  4. AMLODIPINE [Concomitant]
     Route: 048
  5. HYDROCHLOROTHIAZIDE [Concomitant]
     Route: 048
  6. NITROFURANTOIN MACROCRYSTALS [Concomitant]
     Route: 048
  7. PERINDOPRIL ERBUMINE [Concomitant]
     Route: 048
  8. ZOLPIDEM [Concomitant]
     Route: 048
  9. ALREX [Concomitant]
     Dosage: 1 DROP PRN BOTH EYES
     Route: 047
  10. TETRACAINE [Concomitant]
     Route: 065
  11. MYDRAL [Concomitant]
     Route: 065
  12. PHENYLEPHRINE [Concomitant]
     Route: 065

REACTIONS (3)
  - Chalazion [Unknown]
  - Visual acuity reduced [Unknown]
  - Metamorphopsia [Unknown]
